FAERS Safety Report 6992317-1 (Version None)
Quarter: 2010Q3

REPORT INFORMATION
  Report Type: 
  Country: None (occurrence: None)
  Receive Date: 20100917
  Receipt Date: 20100907
  Transmission Date: 20110219
  Serious: Yes (Death, Other)
  Sender: FDA-Public Use
  Company Number: US-PFIZER INC-2010113315

PATIENT
  Sex: Female

DRUGS (19)
  1. IRINOTECAN HCL [Suspect]
     Indication: COLORECTAL CANCER METASTATIC
     Dosage: UNK
     Dates: start: 20100101
  2. IRINOTECAN HCL [Suspect]
     Dosage: UNK
     Dates: start: 20100505
  3. XELODA [Suspect]
     Indication: COLORECTAL CANCER METASTATIC
     Dosage: UNK
     Dates: start: 20081218
  4. AVASTIN [Suspect]
     Indication: COLORECTAL CANCER METASTATIC
     Dosage: 20 MG, UNK
     Route: 042
     Dates: start: 20070601
  5. AVASTIN [Suspect]
     Dosage: 20 MG, UNK
     Dates: start: 20070801, end: 20090101
  6. AVASTIN [Suspect]
     Dosage: 20 MG, UNK
     Route: 042
     Dates: start: 20100101
  7. FLUOROURACIL [Suspect]
     Indication: COLORECTAL CANCER METASTATIC
     Dosage: UNK
     Dates: start: 20090128, end: 20090901
  8. FLUOROURACIL [Suspect]
     Dosage: UNK
     Dates: start: 20100101
  9. LEUCOVORIN CALCIUM [Suspect]
     Indication: COLORECTAL CANCER METASTATIC
     Dosage: UNK
     Dates: start: 20090128, end: 20090901
  10. LEUCOVORIN CALCIUM [Suspect]
     Dosage: UNK
     Dates: start: 20100101
  11. ELOXATIN [Suspect]
     Indication: COLORECTAL CANCER METASTATIC
     Dosage: UNK
     Route: 042
     Dates: start: 20070701, end: 20070701
  12. ELOXATIN [Suspect]
     Dosage: UNK
     Route: 042
     Dates: start: 20070101, end: 20070101
  13. ELOXATIN [Suspect]
     Dosage: UNK
     Route: 042
     Dates: start: 20080601, end: 20080601
  14. ELOXATIN [Suspect]
     Dosage: UNK
     Route: 042
     Dates: start: 20081218, end: 20081218
  15. ELOXATIN [Suspect]
     Dosage: UNK
     Route: 042
     Dates: start: 20090513, end: 20090513
  16. ELOXATIN [Suspect]
     Dosage: UNK
     Dates: start: 20100101
  17. ELOXATIN [Suspect]
     Dosage: UNK
     Dates: start: 20100501
  18. DEXAMETHASONE [Concomitant]
  19. ZOFRAN [Concomitant]

REACTIONS (6)
  - ABDOMINAL PAIN UPPER [None]
  - ACTIVITIES OF DAILY LIVING IMPAIRED [None]
  - DEATH [None]
  - EPISTAXIS [None]
  - TREMOR [None]
  - VOMITING [None]
